FAERS Safety Report 18491877 (Version 1)
Quarter: 2020Q4

REPORT INFORMATION
  Report Type: Spontaneous
  Country: US (occurrence: US)
  Receive Date: 20201111
  Receipt Date: 20201111
  Transmission Date: 20210114
  Serious: Yes (Death, Other)
  Sender: FDA-Public Use
  Company Number: US-PURDUE-USA-2020-0176272

PATIENT
  Age: 58 Year
  Sex: Male

DRUGS (1)
  1. HYDROCODONE BITARTRATE AND ACETAMINOPHEN [Suspect]
     Active Substance: ACETAMINOPHEN\HYDROCODONE BITARTRATE
     Indication: BACK PAIN
     Dosage: UNKNOWN
     Route: 048

REACTIONS (6)
  - Toxicity to various agents [Fatal]
  - Major depression [Unknown]
  - Drug dependence [Unknown]
  - Drug tolerance [Unknown]
  - Alcohol poisoning [Fatal]
  - Overdose [Unknown]

NARRATIVE: CASE EVENT DATE: 20180514
